FAERS Safety Report 9012193 (Version 2)
Quarter: 2013Q1

REPORT INFORMATION
  Report Type: Spontaneous
  Country: JP (occurrence: JP)
  Receive Date: 20130114
  Receipt Date: 20130213
  Transmission Date: 20140127
  Serious: Yes (Life-Threatening)
  Sender: FDA-Public Use
  Company Number: JP-PFIZER INC-2012316720

PATIENT
  Age: 64 Year
  Sex: Male
  Weight: 56 kg

DRUGS (3)
  1. ZOSYN [Suspect]
     Indication: ABDOMINAL ABSCESS
     Dosage: 4.5 G, SINGLE
     Route: 041
     Dates: start: 20121206, end: 20121206
  2. MEROPENEM [Suspect]
     Indication: ABDOMINAL ABSCESS
     Dosage: 0.5 G, DAILY DOSE
     Route: 041
     Dates: start: 20121206, end: 20121206
  3. NEO-MINOPHAGEN C [Concomitant]
     Indication: CONTRAST MEDIA ALLERGY
     Dosage: 20 ML/DAY
     Route: 041
     Dates: start: 20121203, end: 20121214

REACTIONS (2)
  - Anaphylactic shock [Recovered/Resolved with Sequelae]
  - Acute myocardial infarction [Recovering/Resolving]
